FAERS Safety Report 7775355-0 (Version None)
Quarter: 2011Q3

REPORT INFORMATION
  Report Type: 
  Country: None (occurrence: None)
  Receive Date: 20110923
  Receipt Date: 20110914
  Transmission Date: 20111222
  Serious: Yes (Hospitalization)
  Sender: FDA-Public Use
  Company Number: PHHY2011US62007

PATIENT
  Age: 74 Year
  Sex: Female

DRUGS (1)
  1. TOBI [Suspect]
     Dosage: 300 MG, BID(EVERY OTHER MONTH)
     Dates: start: 20100204

REACTIONS (2)
  - LUNG INFECTION PSEUDOMONAL [None]
  - LUNG INFECTION [None]
